FAERS Safety Report 8681194 (Version 3)
Quarter: 2012Q4

REPORT INFORMATION
  Report Type: 
  Country: US (occurrence: US)
  Receive Date: 20120725
  Receipt Date: 20121017
  Transmission Date: 20130627
  Serious: No
  Sender: FDA-Public Use
  Company Number: US-BIOGENIDEC-2012BI026396

PATIENT
  Age: 49 Year
  Sex: Male

DRUGS (1)
  1. TYSABRI [Suspect]
     Indication: MULTIPLE SCLEROSIS
     Route: 042
     Dates: start: 20120703

REACTIONS (10)
  - Palpitations [Not Recovered/Not Resolved]
  - Pain in extremity [Not Recovered/Not Resolved]
  - Heart rate increased [Recovered/Resolved]
  - Stress [Not Recovered/Not Resolved]
  - Myalgia [Unknown]
  - Influenza like illness [Unknown]
  - Hypertension [Recovered/Resolved]
  - Headache [Recovered/Resolved]
  - Fatigue [Not Recovered/Not Resolved]
  - Drug ineffective [Unknown]
